FAERS Safety Report 22181795 (Version 1)
Quarter: 2023Q2

REPORT INFORMATION
  Report Type: Spontaneous
  Country: US (occurrence: None)
  Receive Date: 20230406
  Receipt Date: 20230406
  Transmission Date: 20230722
  Serious: Yes (Disabling)
  Sender: FDA-Public Use
  Company Number: None

PATIENT
  Age: 64 Year
  Sex: Male
  Weight: 76.95 kg

DRUGS (3)
  1. LATANOPROST [Suspect]
     Active Substance: LATANOPROST
     Indication: Glaucoma
     Dosage: OTHER QUANTITY : 2 DROP(S);?FREQUENCY : AT BEDTIME;?
     Route: 047
     Dates: start: 20230402, end: 20230405
  2. LOW DOSE ASPIRIN [Concomitant]
     Active Substance: ASPIRIN
  3. TIMOLOL [Concomitant]
     Active Substance: TIMOLOL

REACTIONS (8)
  - Chest pain [None]
  - Chest discomfort [None]
  - Abdominal pain [None]
  - Heart rate increased [None]
  - Insomnia [None]
  - Infrequent bowel movements [None]
  - Therapy cessation [None]
  - Insurance issue [None]

NARRATIVE: CASE EVENT DATE: 20230402
